FAERS Safety Report 4549486-2 (Version None)
Quarter: 2005Q1

REPORT INFORMATION
  Report Type: 
  Country: None (occurrence: None)
  Receive Date: 20050110
  Receipt Date: 20050110
  Transmission Date: 20050727
  Serious: Yes (Disabling)
  Sender: FDA-Public Use
  Company Number: None

PATIENT
  Age: 55 Year
  Sex: Male
  Weight: 74.8435 kg

DRUGS (1)
  1. LARIAM [Suspect]
     Indication: MALARIA PROPHYLAXIS
     Dosage: 1 WEEK ORAL
     Route: 048
     Dates: start: 20041223, end: 20050108

REACTIONS (5)
  - DIARRHOEA [None]
  - HALLUCINATION [None]
  - HEADACHE [None]
  - MULTIPLE ALLERGIES [None]
  - NIGHTMARE [None]
